FAERS Safety Report 11719801 (Version 1)
Quarter: 2015Q4

REPORT INFORMATION
  Report Type: Spontaneous
  Country: US (occurrence: US)
  Receive Date: 20151110
  Receipt Date: 20151110
  Transmission Date: 20160304
  Serious: No
  Sender: FDA-Public Use
  Company Number: US-PERRIGO-15US005149

PATIENT
  Age: 45 Year
  Sex: Female
  Weight: 45.35 kg

DRUGS (1)
  1. NICOTINE POLACRILEX [Suspect]
     Active Substance: NICOTINE
     Indication: SMOKING CESSATION THERAPY
     Dosage: 8 MG, SINGLE
     Route: 002
     Dates: start: 20150514, end: 20150514

REACTIONS (4)
  - Lip discolouration [Not Recovered/Not Resolved]
  - Incorrect dose administered [Recovered/Resolved]
  - Tongue discolouration [Not Recovered/Not Resolved]
  - Tooth discolouration [Recovered/Resolved]

NARRATIVE: CASE EVENT DATE: 20150514
